FAERS Safety Report 19668762 (Version 2)
Quarter: 2022Q3

REPORT INFORMATION
  Report Type: Spontaneous
  Country: ES (occurrence: ES)
  Receive Date: 20210806
  Receipt Date: 20220729
  Transmission Date: 20221027
  Serious: Yes (Life-Threatening)
  Sender: FDA-Public Use
  Company Number: ES-009507513-2107ESP008847

PATIENT
  Age: 71 Year
  Sex: Female

DRUGS (7)
  1. ROCURONIUM BROMIDE [Interacting]
     Active Substance: ROCURONIUM BROMIDE
     Indication: Varicose vein operation
     Dosage: UNK
  2. SUGAMMADEX SODIUM [Interacting]
     Active Substance: SUGAMMADEX SODIUM
     Indication: Neuromuscular blockade reversal
     Dosage: UNK
  3. PROPOFOL [Concomitant]
     Active Substance: PROPOFOL
     Indication: Varicose vein operation
  4. FENTANYL [Concomitant]
     Active Substance: FENTANYL
     Indication: Varicose vein operation
  5. LIDOCAINE [Concomitant]
     Active Substance: LIDOCAINE
     Indication: Varicose vein operation
  6. DEXKETOPROFEN [Concomitant]
     Active Substance: DEXKETOPROFEN
     Indication: Analgesic therapy
  7. ACETAMINOPHEN [Concomitant]
     Active Substance: ACETAMINOPHEN
     Indication: Analgesic therapy

REACTIONS (2)
  - Anaphylactic shock [Recovered/Resolved]
  - Drug interaction [Unknown]
